FAERS Safety Report 5720992-8 (Version None)
Quarter: 2008Q2

REPORT INFORMATION
  Report Type: 
  Country: None (occurrence: None)
  Receive Date: 20080423
  Receipt Date: 20071212
  Transmission Date: 20081010
  Serious: Yes (Life-Threatening, Hospitalization, Other)
  Sender: FDA-Public Use
  Company Number: 252708

PATIENT
  Age: 69 Year
  Sex: Female
  Weight: 68.5 kg

DRUGS (4)
  1. AVASTIN [Suspect]
     Indication: OVARIAN CANCER METASTATIC
     Dosage: 680 MG, Q2W, INTRAVENOUS
     Route: 042
     Dates: start: 20070913, end: 20071121
  2. AVASTIN [Suspect]
  3. GEMZAR [Concomitant]
  4. ZOFRAN [Concomitant]

REACTIONS (1)
  - REVERSIBLE POSTERIOR LEUKOENCEPHALOPATHY SYNDROME [None]
